FAERS Safety Report 23209811 (Version 1)
Quarter: 2023Q4

REPORT INFORMATION
  Report Type: Spontaneous
  Country: US (occurrence: US)
  Receive Date: 20231121
  Receipt Date: 20231121
  Transmission Date: 20240110
  Serious: No
  Sender: FDA-Public Use
  Company Number: US-drreddys-LIT/USA/23/0183321

PATIENT
  Sex: Female

DRUGS (7)
  1. METHYLPHENIDATE HYDROCHLORIDE [Suspect]
     Active Substance: METHYLPHENIDATE HYDROCHLORIDE
     Indication: Disruptive mood dysregulation disorder
     Dosage: IMMEDIATE RELEASE FORMULATION
  2. METHYLPHENIDATE HYDROCHLORIDE [Suspect]
     Active Substance: METHYLPHENIDATE HYDROCHLORIDE
     Indication: Attention deficit hyperactivity disorder
     Dosage: EXTENDED-RELEASE FORMULATION
  3. METHYLPHENIDATE HYDROCHLORIDE [Suspect]
     Active Substance: METHYLPHENIDATE HYDROCHLORIDE
  4. CITALOPRAM [Suspect]
     Active Substance: CITALOPRAM HYDROBROMIDE
     Indication: Disruptive mood dysregulation disorder
  5. CITALOPRAM [Suspect]
     Active Substance: CITALOPRAM HYDROBROMIDE
     Indication: Attention deficit hyperactivity disorder
  6. GUANFACINE [Suspect]
     Active Substance: GUANFACINE
     Indication: Disruptive mood dysregulation disorder
  7. GUANFACINE [Suspect]
     Active Substance: GUANFACINE
     Indication: Attention deficit hyperactivity disorder

REACTIONS (3)
  - Abdominal pain [Unknown]
  - Therapy partial responder [Unknown]
  - Product use in unapproved indication [Unknown]
